FAERS Safety Report 5931670-4 (Version None)
Quarter: 2008Q4

REPORT INFORMATION
  Report Type: 
  Country: None (occurrence: None)
  Receive Date: 20081009
  Receipt Date: 20080505
  Transmission Date: 20090506
  Serious: Yes (Other)
  Sender: FDA-Public Use
  Company Number: PHEH2008US03987

PATIENT
  Sex: Female

DRUGS (1)
  1. ZOMETA [Suspect]
     Dates: start: 19970101

REACTIONS (7)
  - DENTAL CARE [None]
  - DEPRESSED MOOD [None]
  - GINGIVAL INFECTION [None]
  - HYPOPHAGIA [None]
  - LOOSE TOOTH [None]
  - OSTEONECROSIS [None]
  - WEIGHT DECREASED [None]
